FAERS Safety Report 6194102-X (Version None)
Quarter: 2009Q2

REPORT INFORMATION
  Report Type: 
  Country: None (occurrence: None)
  Receive Date: 20090518
  Receipt Date: 20090507
  Transmission Date: 20091009
  Serious: Yes (Other)
  Sender: FDA-Public Use
  Company Number: PHHY2009IT17472

PATIENT
  Age: 53 Year
  Sex: Male

DRUGS (6)
  1. LEPONEX [Suspect]
     Indication: DEMENTIA
     Dosage: 25 MG, QD
     Route: 048
     Dates: start: 20090421
  2. LEPONEX [Suspect]
     Dosage: 50 MG, QD
     Route: 048
     Dates: end: 20090424
  3. SIMVASTATIN [Concomitant]
     Indication: HYPERCHOLESTEROLAEMIA
     Dosage: 10 MG
     Route: 048
     Dates: start: 20080101
  4. ABILIFY [Concomitant]
     Indication: DEMENTIA
     Dosage: 10 MG
     Route: 048
     Dates: start: 20080101
  5. SINEMET [Concomitant]
     Indication: PARKINSONISM
     Dosage: 200 MG
     Route: 048
     Dates: start: 20090201
  6. LYRICA [Concomitant]
     Indication: DEMENTIA
     Dosage: 150 MG
     Route: 048
     Dates: start: 20090312

REACTIONS (4)
  - ANGIOEDEMA [None]
  - ERYTHEMA [None]
  - OEDEMA [None]
  - PYREXIA [None]
